FAERS Safety Report 13825400 (Version 1)
Quarter: 2017Q3

REPORT INFORMATION
  Report Type: Spontaneous
  Country: FI (occurrence: FI)
  Receive Date: 20170802
  Receipt Date: 20170802
  Transmission Date: 20171127
  Serious: Yes (Other)
  Sender: FDA-Public Use
  Company Number: FI-JNJFOC-20170723294

PATIENT
  Age: 81 Year
  Sex: Female

DRUGS (6)
  1. LINATIL [Concomitant]
     Active Substance: ENALAPRIL MALEATE
     Indication: AFFECTIVE DISORDER
     Route: 048
     Dates: start: 20151110, end: 20170613
  2. SOMAC [Concomitant]
     Active Substance: PANTOPRAZOLE SODIUM
     Indication: GASTROINTESTINAL DISORDER THERAPY
     Route: 048
     Dates: start: 20170131, end: 20170613
  3. OPAMOX [Concomitant]
     Active Substance: OXAZEPAM
     Dosage: 7.5 TO 15 MG
     Route: 048
     Dates: start: 20170207
  4. RISPERDAL [Suspect]
     Active Substance: RISPERIDONE
     Indication: ABNORMAL BEHAVIOUR
     Dosage: IN THE EVENING
     Route: 048
     Dates: start: 20151210, end: 201702
  5. RISPERDAL [Suspect]
     Active Substance: RISPERIDONE
     Indication: ABNORMAL BEHAVIOUR
     Dosage: IN THE EVENING
     Route: 048
     Dates: start: 201702, end: 20170613
  6. MIRTAZAPIN [Concomitant]
     Active Substance: MIRTAZAPINE
     Indication: INSOMNIA
     Route: 048
     Dates: start: 20151208, end: 20170613

REACTIONS (2)
  - Pemphigoid [Unknown]
  - Cerebral disorder [Not Recovered/Not Resolved]

NARRATIVE: CASE EVENT DATE: 201701
